FAERS Safety Report 24206815 (Version 1)
Quarter: 2024Q3

REPORT INFORMATION
  Report Type: Spontaneous
  Country: US (occurrence: US)
  Receive Date: 20240813
  Receipt Date: 20240813
  Transmission Date: 20241016
  Serious: No
  Sender: INSUD PHARMA
  Company Number: US-INSUD PHARMA-2407US06008

PATIENT

DRUGS (1)
  1. SLYND [Suspect]
     Active Substance: DROSPIRENONE
     Indication: Reproductive system disorder prophylaxis
     Dosage: UNK
     Route: 048
     Dates: start: 2023

REACTIONS (2)
  - Oligomenorrhoea [Unknown]
  - Product use in unapproved indication [Unknown]
